FAERS Safety Report 7291926-2 (Version None)
Quarter: 2011Q1

REPORT INFORMATION
  Report Type: 
  Country: None (occurrence: None)
  Receive Date: 20110214
  Receipt Date: 20110205
  Transmission Date: 20110831
  Serious: Yes (Other)
  Sender: FDA-Public Use
  Company Number: US-RB-021597-11

PATIENT
  Age: 26 Year
  Sex: Female

DRUGS (3)
  1. SUBOXONE [Suspect]
     Indication: PRODUCT USED FOR UNKNOWN INDICATION
     Dosage: UNKNOWN DOSING DETAILS
     Route: 065
  2. SUBOXONE [Suspect]
     Dosage: UNKNOWN DOSING DETAILS
     Route: 065
  3. SUBOXONE [Suspect]
     Indication: DRUG DEPENDENCE
     Route: 060
     Dates: start: 20110125, end: 20110101

REACTIONS (6)
  - INTRACRANIAL PRESSURE INCREASED [None]
  - HEADACHE [None]
  - DIPLOPIA [None]
  - TINNITUS [None]
  - VISION BLURRED [None]
  - PAPILLOEDEMA [None]
